FAERS Safety Report 20515378 (Version 1)
Quarter: 2022Q1

REPORT INFORMATION
  Report Type: Spontaneous
  Country: US (occurrence: US)
  Receive Date: 20220224
  Receipt Date: 20220224
  Transmission Date: 20220424
  Serious: No
  Sender: FDA-Public Use
  Company Number: US-LANTHEUS-LMI-2021-00723

PATIENT
  Age: 53 Year
  Sex: Male

DRUGS (6)
  1. DEFINITY [Suspect]
     Active Substance: PERFLUTREN
     Indication: Echocardiogram
     Dosage: 2 MILLILITRE (1.3 ML DEFINITY PREPARED IN 8.7 ML DILUENT)
     Route: 042
     Dates: start: 20210624, end: 20210624
  2. HUMIRA [Concomitant]
     Active Substance: ADALIMUMAB
     Indication: Crohn^s disease
     Dosage: 40/0.8 MILLIGRAM
  3. LISINOPRIL [Concomitant]
     Active Substance: LISINOPRIL
     Indication: Product used for unknown indication
     Dosage: 40 MILLIGRAM
  4. HYDROCHLOROTHIAZIDE [Concomitant]
     Active Substance: HYDROCHLOROTHIAZIDE
     Indication: Product used for unknown indication
     Dosage: 12.5 MILLIGRAM, QD
  5. COREG [Concomitant]
     Active Substance: CARVEDILOL
     Indication: Product used for unknown indication
     Dosage: 6.25 MILLIGRAM, BID
  6. VALIUM [Concomitant]
     Active Substance: DIAZEPAM
     Indication: Anxiety
     Dosage: UNK  PRN

REACTIONS (2)
  - Pain in extremity [Recovered/Resolved]
  - Limb discomfort [Recovered/Resolved]

NARRATIVE: CASE EVENT DATE: 20210624
